FAERS Safety Report 7535609-X (Version None)
Quarter: 2011Q2

REPORT INFORMATION
  Report Type: 
  Country: None (occurrence: None)
  Receive Date: 20110609
  Receipt Date: 20110519
  Transmission Date: 20111010
  Serious: No
  Sender: FDA-Public Use
  Company Number: US-BAYER-2011-043297

PATIENT
  Sex: Female

DRUGS (1)
  1. BEYAZ [Suspect]

REACTIONS (1)
  - HYPOMENORRHOEA [None]
